FAERS Safety Report 7343869-3 (Version None)
Quarter: 2011Q1

REPORT INFORMATION
  Report Type: 
  Country: None (occurrence: None)
  Receive Date: 20110310
  Receipt Date: 20110217
  Transmission Date: 20110831
  Serious: Yes (Hospitalization)
  Sender: FDA-Public Use
  Company Number: GXKR2004DE00541

PATIENT
  Age: 68 Year
  Sex: Male

DRUGS (4)
  1. DEXAMETHASONE [Suspect]
     Indication: BRAIN OEDEMA
     Dosage: UNK
     Route: 065
  2. PREDNISOLONE [Concomitant]
     Indication: HYPOPITUITARISM
     Route: 065
  3. PHENYTOIN [Interacting]
     Indication: PARTIAL SEIZURES
     Dosage: UNK
     Route: 065
  4. CEFTRIAXONE [Concomitant]
     Indication: RESPIRATORY TRACT INFECTION
     Route: 065

REACTIONS (3)
  - ACUTE RESPIRATORY FAILURE [None]
  - DRUG INTERACTION [None]
  - DRUG HYPERSENSITIVITY [None]
